FAERS Safety Report 9671433 (Version 1)
Quarter: 2013Q4

REPORT INFORMATION
  Report Type: Spontaneous
  Country: US (occurrence: US)
  Receive Date: 20131106
  Receipt Date: 20131106
  Transmission Date: 20140711
  Serious: Yes (Hospitalization)
  Sender: FDA-Public Use
  Company Number: US-FRI-1000050762

PATIENT
  Age: 80 Year
  Sex: Female

DRUGS (1)
  1. LINZESS [Suspect]

REACTIONS (1)
  - Psychotic disorder [Unknown]
